FAERS Safety Report 5607022-3 (Version None)
Quarter: 2008Q1

REPORT INFORMATION
  Report Type: 
  Country: None (occurrence: None)
  Receive Date: 20080129
  Receipt Date: 20080118
  Transmission Date: 20080703
  Serious: Yes (Other)
  Sender: FDA-Public Use
  Company Number: JP-PFIZER INC-2008006551

PATIENT
  Age: 73 Year
  Sex: Female

DRUGS (2)
  1. ALDACTONE [Suspect]
     Dosage: DAILY DOSE:25MG
     Route: 048
  2. DRUG, UNSPECIFIED [Concomitant]

REACTIONS (1)
  - LEUKOENCEPHALOPATHY [None]
